FAERS Safety Report 22589076 (Version 1)
Quarter: 2023Q2

REPORT INFORMATION
  Report Type: Report from Study
  Country: US (occurrence: None)
  Receive Date: 20230612
  Receipt Date: 20230612
  Transmission Date: 20230721
  Serious: Yes (Hospitalization)
  Sender: FDA-Public Use
  Company Number: US-Eisai Medical Research-EC-2023-140161

PATIENT
  Age: 81 Year
  Sex: Male

DRUGS (2)
  1. LENVIMA [Suspect]
     Active Substance: LENVATINIB
     Indication: Thyroid cancer
     Route: 048
     Dates: start: 20230425, end: 20230510
  2. LENVIMA [Suspect]
     Active Substance: LENVATINIB
     Route: 048
     Dates: start: 20230511

REACTIONS (4)
  - Hypertension [Recovering/Resolving]
  - Muscular weakness [Not Recovered/Not Resolved]
  - Hyposmia [Not Recovered/Not Resolved]
  - Upper-airway cough syndrome [Unknown]

NARRATIVE: CASE EVENT DATE: 20230101
